FAERS Safety Report 10171871 (Version 1)
Quarter: 2014Q2

REPORT INFORMATION
  Report Type: Spontaneous
  Country: US (occurrence: None)
  Receive Date: 20140512
  Receipt Date: 20140512
  Transmission Date: 20141212
  Serious: Yes (Death, Other)
  Sender: FDA-Public Use
  Company Number: 2014P1003852

PATIENT
  Sex: Male

DRUGS (2)
  1. DOXYCYCLINE HYCLATE CAPSULES [Suspect]
  2. MEFLOQUINE [Suspect]

REACTIONS (4)
  - Abnormal dreams [None]
  - Post-traumatic stress disorder [None]
  - Homicide [None]
  - Completed suicide [None]
